FAERS Safety Report 18360401 (Version 1)
Quarter: 2020Q4

REPORT INFORMATION
  Report Type: Spontaneous
  Country: US (occurrence: US)
  Receive Date: 20201008
  Receipt Date: 20201008
  Transmission Date: 20210114
  Serious: No
  Sender: FDA-Public Use
  Company Number: None

PATIENT
  Sex: Female
  Weight: 54.43 kg

DRUGS (9)
  1. CALTRATE 600+D PLUS MINERALS [Concomitant]
  2. TRAVATAN Z [Concomitant]
     Active Substance: TRAVOPROST
  3. CARVEDILOL. [Concomitant]
     Active Substance: CARVEDILOL
  4. FASLODEX [Concomitant]
     Active Substance: FULVESTRANT
  5. LETROZOLE. [Concomitant]
     Active Substance: LETROZOLE
  6. LATANOPROST. [Concomitant]
     Active Substance: LATANOPROST
  7. FERROUS SULFATE. [Concomitant]
     Active Substance: FERROUS SULFATE
  8. VITAMIN D (CHOLECALCIFEROL) [Concomitant]
     Active Substance: CHOLECALCIFEROL
  9. IBRANCE [Suspect]
     Active Substance: PALBOCICLIB
     Indication: BREAST CANCER
     Route: 048
     Dates: start: 20200104, end: 20200928

REACTIONS (1)
  - Disease progression [None]
